FAERS Safety Report 7013572-8 (Version None)
Quarter: 2010Q3

REPORT INFORMATION
  Report Type: 
  Country: None (occurrence: None)
  Receive Date: 20100924
  Receipt Date: 20100916
  Transmission Date: 20110219
  Serious: Yes (Hospitalization, Other)
  Sender: FDA-Public Use
  Company Number: US-AMGEN-QUU431845

PATIENT
  Sex: Female

DRUGS (10)
  1. NPLATE [Suspect]
     Indication: IDIOPATHIC THROMBOCYTOPENIC PURPURA
     Dates: start: 20090901
  2. NEUPOGEN [Concomitant]
  3. ABRAXANE [Concomitant]
  4. CEFUROXIME [Concomitant]
  5. FLAGYL [Concomitant]
  6. LASIX [Concomitant]
  7. TRIAMTERENE AND HYDROCHLOROTHIAZIDE [Concomitant]
  8. LISINOPRIL [Concomitant]
  9. ATENOLOL [Concomitant]
  10. AVASTIN [Concomitant]

REACTIONS (15)
  - ASTHENIA [None]
  - DECREASED APPETITE [None]
  - DIARRHOEA [None]
  - DISEASE PROGRESSION [None]
  - DISORIENTATION [None]
  - ECCHYMOSIS [None]
  - FLUID OVERLOAD [None]
  - HEMIPARESIS [None]
  - HYPERKALAEMIA [None]
  - OEDEMA [None]
  - PETECHIAE [None]
  - RENAL FAILURE ACUTE [None]
  - SINUSITIS [None]
  - URINARY TRACT INFECTION [None]
  - WHITE BLOOD CELL COUNT DECREASED [None]
